FAERS Safety Report 4342903-2 (Version None)
Quarter: 2004Q2

REPORT INFORMATION
  Report Type: 
  Country: None (occurrence: None)
  Receive Date: 20040416
  Receipt Date: 20040407
  Transmission Date: 20050107
  Serious: Yes (Death)
  Sender: FDA-Public Use
  Company Number: USA-2003-0011473

PATIENT
  Age: 44 Year
  Sex: Male

DRUGS (3)
  1. OXYCODONE HCL [Suspect]
     Dosage: MG
  2. ZOLPIDEM TARTRATE [Suspect]
  3. ACETAMINOPHEN [Suspect]

REACTIONS (11)
  - ACCIDENT [None]
  - ACCIDENTAL OVERDOSE [None]
  - CARDIO-RESPIRATORY ARREST [None]
  - DEPRESSED LEVEL OF CONSCIOUSNESS [None]
  - HEPATITIS [None]
  - HYPERSENSITIVITY [None]
  - HYPERTENSIVE HEART DISEASE [None]
  - MULTIPLE DRUG OVERDOSE [None]
  - PNEUMONITIS [None]
  - TOXICOLOGIC TEST ABNORMAL [None]
  - VENTRICULAR HYPERTROPHY [None]
